FAERS Safety Report 20434035 (Version 1)
Quarter: 2022Q1

REPORT INFORMATION
  Report Type: Other
  Country: US (occurrence: None)
  Receive Date: 20220205
  Receipt Date: 20220205
  Transmission Date: 20220424
  Serious: No
  Sender: FDA-Public Use
  Company Number: US-ROCHE-3015179

PATIENT
  Sex: Female

DRUGS (1)
  1. OCREVUS [Suspect]
     Active Substance: OCRELIZUMAB
     Indication: Relapsing multiple sclerosis
     Dosage: LAST DATE OF TREATMENT: 16/JUN/2021, DATE OF NEXT TREATMENT: 02/DEC/2021, NEXT DATE OF TREATMENT SCH
     Route: 065

REACTIONS (1)
  - COVID-19 [Unknown]
